FAERS Safety Report 18637145 (Version 1)
Quarter: 2020Q4

REPORT INFORMATION
  Report Type: Spontaneous
  Country: US (occurrence: US)
  Receive Date: 20201219
  Receipt Date: 20201219
  Transmission Date: 20210114
  Serious: Yes (Death)
  Sender: FDA-Public Use
  Company Number: US-ABBVIE-20P-163-3697188-00

PATIENT
  Sex: Female

DRUGS (2)
  1. SYNAGIS [Suspect]
     Active Substance: PALIVIZUMAB
     Indication: LARYNGOMALACIA
  2. SYNAGIS [Suspect]
     Active Substance: PALIVIZUMAB
     Indication: BENIGN CONGENITAL HYPOTONIA
     Route: 030

REACTIONS (2)
  - Off label use [Unknown]
  - Death [Fatal]
